FAERS Safety Report 8575347-8 (Version None)
Quarter: 2012Q3

REPORT INFORMATION
  Report Type: 
  Country: None (occurrence: None)
  Receive Date: 20120807
  Receipt Date: 20120730
  Transmission Date: 20120928
  Serious: No
  Sender: FDA-Public Use
  Company Number: US-PFIZER INC-2012189244

PATIENT
  Sex: Female

DRUGS (3)
  1. LYRICA [Suspect]
     Dosage: 50MG IN THE MORNING, 100MG IN THE AFTERNOON AND 75MG AT NIGHT
     Route: 048
     Dates: start: 20120101, end: 20120101
  2. LYRICA [Suspect]
     Dosage: 75MG IN THE MORNING, 100MG IN THE AFTERNOON AND 75MG AT NIGHT
     Route: 048
     Dates: start: 20120101, end: 20120101
  3. LYRICA [Suspect]
     Indication: FACIAL PAIN
     Dosage: 25 MG, 3X/DAY
     Route: 048
     Dates: start: 20120401, end: 20120101

REACTIONS (5)
  - MALAISE [None]
  - OEDEMA PERIPHERAL [None]
  - NAUSEA [None]
  - DRUG INEFFECTIVE [None]
  - HEADACHE [None]
